FAERS Safety Report 8356938-6 (Version None)
Quarter: 2012Q2

REPORT INFORMATION
  Report Type: 
  Country: None (occurrence: None)
  Receive Date: 20120514
  Receipt Date: 20091224
  Transmission Date: 20120825
  Serious: No
  Sender: FDA-Public Use
  Company Number: US-TEVA-2009029867

PATIENT
  Sex: Male
  Weight: 72.64 kg

DRUGS (2)
  1. TREANDA [Suspect]
     Indication: NON-HODGKIN'S LYMPHOMA
     Route: 042
  2. RITUXAN [Concomitant]
     Indication: NON-HODGKIN'S LYMPHOMA
     Route: 042

REACTIONS (3)
  - PHLEBITIS [None]
  - VENOUS INJURY [None]
  - INJECTION SITE REACTION [None]
